FAERS Safety Report 14527122 (Version 1)
Quarter: 2018Q1

REPORT INFORMATION
  Report Type: Spontaneous
  Country: US (occurrence: US)
  Receive Date: 20180212
  Receipt Date: 20180212
  Transmission Date: 20180509
  Serious: Yes (Disabling)
  Sender: FDA-Public Use
  Company Number: None

PATIENT
  Age: 15 Year
  Sex: Male
  Weight: 63 kg

DRUGS (3)
  1. APEXICON E [Suspect]
     Active Substance: DIFLORASONE DIACETATE
     Indication: ECZEMA
     Dosage: ?          QUANTITY:1 AS NEEDED;?
     Route: 061
     Dates: start: 20160225, end: 20180209
  2. TACROLIMUS. [Concomitant]
     Active Substance: TACROLIMUS
  3. ELIDEL [Concomitant]
     Active Substance: PIMECROLIMUS

REACTIONS (6)
  - Insomnia [None]
  - Educational problem [None]
  - Sleep disorder [None]
  - Fatigue [None]
  - Eye disorder [None]
  - Delayed sleep phase [None]

NARRATIVE: CASE EVENT DATE: 20180209
